FAERS Safety Report 9231725 (Version 3)
Quarter: 2014Q2

REPORT INFORMATION
  Report Type: Report from Study
  Country: CA (occurrence: CA)
  Receive Date: 20130415
  Receipt Date: 20140626
  Transmission Date: 20141212
  Serious: Yes (Other)
  Sender: FDA-Public Use
  Company Number: CA-ROCHE-1146524

PATIENT
  Age: 57 Year
  Sex: Female
  Weight: 47.6 kg

DRUGS (18)
  1. RITUXAN [Suspect]
     Indication: RHEUMATOID ARTHRITIS
     Dosage: MOST RECENT DOSE ON 28/MAY/2014
     Route: 042
     Dates: start: 20100721
  2. PREDNISONE [Concomitant]
  3. HYDROXYCHLOROQUINE [Concomitant]
  4. ZOLOFT [Concomitant]
  5. LEVOTHYROXINE SODIUM [Concomitant]
  6. ZOPICLONE [Concomitant]
  7. TRAMACET [Concomitant]
     Route: 065
  8. CYCLOBENZAPRINE [Concomitant]
     Indication: MUSCLE SPASMS
     Route: 065
  9. VITAMIN B6 [Concomitant]
  10. VITAMIN B12 [Concomitant]
  11. COPPER [Concomitant]
  12. SELENIUM [Concomitant]
  13. FLAXSEED [Concomitant]
  14. FISH OIL [Concomitant]
  15. DIPHENHYDRAMINE HCL [Concomitant]
     Route: 048
     Dates: start: 20100721
  16. ACETAMINOPHEN [Concomitant]
     Route: 048
     Dates: start: 20100721
  17. METHYLPREDNISOLONE [Concomitant]
     Route: 042
     Dates: start: 20100721
  18. MIRTAZAPINE [Concomitant]

REACTIONS (9)
  - Extremity necrosis [Recovered/Resolved]
  - Joint injury [Not Recovered/Not Resolved]
  - Bile acid malabsorption [Unknown]
  - Ear pain [Not Recovered/Not Resolved]
  - Oropharyngeal pain [Not Recovered/Not Resolved]
  - Foot deformity [Not Recovered/Not Resolved]
  - Stress [Unknown]
  - Insomnia [Unknown]
  - Poor peripheral circulation [Recovered/Resolved]
